FAERS Safety Report 13419359 (Version 3)
Quarter: 2017Q3

REPORT INFORMATION
  Report Type: Report from Study
  Country: BR (occurrence: BR)
  Receive Date: 20170407
  Receipt Date: 20170822
  Transmission Date: 20171127
  Serious: Yes (Other)
  Sender: FDA-Public Use
  Company Number: BR-ROCHE-1917592

PATIENT
  Age: 64 Year
  Sex: Female
  Weight: 52 kg

DRUGS (2)
  1. ACTEMRA [Suspect]
     Active Substance: TOCILIZUMAB
     Indication: RHEUMATOID ARTHRITIS
     Route: 042
     Dates: start: 20151201
  2. ARAVA [Concomitant]
     Active Substance: LEFLUNOMIDE
     Dosage: INDICATION WAS NOT INFORMED
     Route: 065

REACTIONS (16)
  - Pain [Unknown]
  - Urinary tract infection [Recovered/Resolved]
  - Gastritis [Recovered/Resolved]
  - Blood cholesterol increased [Unknown]
  - Arthralgia [Unknown]
  - Abdominal pain upper [Recovered/Resolved]
  - Cataract [Unknown]
  - Musculoskeletal pain [Unknown]
  - Body height decreased [Unknown]
  - Pain [Unknown]
  - Ligament disorder [Unknown]
  - Abdominal pain [Recovering/Resolving]
  - Weight decreased [Unknown]
  - Lactose intolerance [Recovered/Resolved]
  - Micturition disorder [Recovering/Resolving]
  - Neck pain [Unknown]

NARRATIVE: CASE EVENT DATE: 201706
